FAERS Safety Report 9420152 (Version 1)
Quarter: 2013Q3

REPORT INFORMATION
  Report Type: Spontaneous
  Country: US (occurrence: US)
  Receive Date: 20130725
  Receipt Date: 20130725
  Transmission Date: 20140515
  Serious: Yes (Other)
  Sender: FDA-Public Use
  Company Number: US-ROCHE-1250101

PATIENT
  Sex: Female

DRUGS (2)
  1. LUCENTIS [Suspect]
     Indication: MACULAR DEGENERATION
     Route: 050
  2. LUCENTIS [Suspect]
     Indication: AGE-RELATED MACULAR DEGENERATION

REACTIONS (8)
  - Ischaemic stroke [Recovered/Resolved]
  - Injection site pain [Not Recovered/Not Resolved]
  - Dizziness [Recovered/Resolved]
  - Disorientation [Recovered/Resolved]
  - Headache [Recovered/Resolved]
  - Counterfeit drug administered [Unknown]
  - Multiple use of single-use product [Unknown]
  - Visual acuity reduced [Not Recovered/Not Resolved]
